FAERS Safety Report 5731450-9 (Version None)
Quarter: 2008Q2

REPORT INFORMATION
  Report Type: 
  Country: None (occurrence: None)
  Receive Date: 20080508
  Receipt Date: 20080430
  Transmission Date: 20081010
  Serious: Yes (Other)
  Sender: FDA-Public Use
  Company Number: US-ASTRAZENECA-2008UW08830

PATIENT
  Age: 52 Year
  Sex: Female

DRUGS (1)
  1. SEROQUEL [Suspect]
     Route: 048
     Dates: start: 20030101

REACTIONS (4)
  - ARRHYTHMIA [None]
  - MENOPAUSE [None]
  - PALPITATIONS [None]
  - SKIN EXFOLIATION [None]
